FAERS Safety Report 4446740-X (Version None)
Quarter: 2004Q3

REPORT INFORMATION
  Report Type: 
  Country: None (occurrence: None)
  Receive Date: 20040910
  Receipt Date: 20040408
  Transmission Date: 20050211
  Serious: Yes (Hospitalization)
  Sender: FDA-Public Use
  Company Number: 04P-167-0272175-00

PATIENT
  Age: 75 Year
  Sex: Female
  Weight: 65 kg

DRUGS (10)
  1. HUMIRA [Suspect]
     Indication: RHEUMATOID ARTHRITIS
     Dosage: 40 MG , 1 IN 2 WK, SUBCUTANEOUS
     Route: 058
     Dates: start: 20030509, end: 20031101
  2. METHOTREXATE SODIUM [Concomitant]
  3. LANSOPRAZOLE [Concomitant]
  4. CELECOXDIB [Concomitant]
  5. ATENOLOL [Concomitant]
  6. FUROSEMIDE [Concomitant]
  7. TRAMADOL HCL [Concomitant]
  8. CALCIUM CARBONATE [Concomitant]
  9. WARFARIN SODIUM [Concomitant]
  10. FOLIC ACID [Concomitant]

REACTIONS (2)
  - ANKLE FRACTURE [None]
  - SEPSIS [None]
